FAERS Safety Report 21687442 (Version 1)
Quarter: 2022Q4

REPORT INFORMATION
  Report Type: Spontaneous
  Country: US (occurrence: None)
  Receive Date: 20221205
  Receipt Date: 20221205
  Transmission Date: 20230112
  Serious: No
  Sender: FDA-Public Use
  Company Number: None

PATIENT
  Age: 71 Year
  Sex: Male

DRUGS (1)
  1. REPATHA [Suspect]
     Active Substance: EVOLOCUMAB
     Dosage: OTHER FREQUENCY : EVERY OTHER WEEK;?
     Route: 058

REACTIONS (4)
  - Peripheral swelling [None]
  - Skin laceration [None]
  - Wound [None]
  - Therapy interrupted [None]
